FAERS Safety Report 9874436 (Version 1)
Quarter: 2014Q1

REPORT INFORMATION
  Report Type: Spontaneous
  Country: BR (occurrence: BR)
  Receive Date: 20140206
  Receipt Date: 20140206
  Transmission Date: 20141002
  Serious: Yes (Other)
  Sender: FDA-Public Use
  Company Number: PHHY2014BR012534

PATIENT
  Age: 71 Year
  Sex: Female
  Weight: 50 kg

DRUGS (3)
  1. MIRTAZAPINE SANDOZ [Suspect]
     Indication: DEPRESSION
     Dosage: 1 DF, QD
     Route: 048
  2. RIVOTRIL [Concomitant]
     Indication: INSOMNIA
     Dosage: 8 DRP, QD
     Route: 048
  3. BONVIVA [Concomitant]
     Indication: OSTEOPOROSIS
     Dosage: 150 MG
     Route: 048

REACTIONS (6)
  - Malaise [Recovered/Resolved]
  - Abdominal distension [Not Recovered/Not Resolved]
  - Functional gastrointestinal disorder [Not Recovered/Not Resolved]
  - Hypoaesthesia oral [Recovered/Resolved]
  - Diarrhoea [Recovered/Resolved]
  - Nausea [Recovered/Resolved]
